FAERS Safety Report 6327960-6 (Version None)
Quarter: 2009Q3

REPORT INFORMATION
  Report Type: 
  Country: None (occurrence: None)
  Receive Date: 20090825
  Receipt Date: 20080804
  Transmission Date: 20100115
  Serious: No
  Sender: FDA-Public Use
  Company Number: US-ABBOTT-08P-163-0468993-00

PATIENT
  Age: 55 Year
  Sex: Female
  Weight: 53.572 kg

DRUGS (4)
  1. SYNTHROID [Suspect]
     Indication: THYROIDECTOMY
     Route: 048
     Dates: start: 20060101, end: 20060101
  2. SYNTHROID [Suspect]
     Route: 048
     Dates: start: 20060101, end: 20070101
  3. SYNTHROID [Suspect]
     Route: 048
     Dates: start: 20070301, end: 20080601
  4. SYNTHROID [Suspect]
     Route: 048
     Dates: start: 20080601

REACTIONS (3)
  - HOT FLUSH [None]
  - HYPERHIDROSIS [None]
  - RASH [None]
